FAERS Safety Report 4653769-5 (Version None)
Quarter: 2005Q2

REPORT INFORMATION
  Report Type: 
  Country: None (occurrence: None)
  Receive Date: 20050504
  Receipt Date: 20050421
  Transmission Date: 20051028
  Serious: Yes (Other)
  Sender: FDA-Public Use
  Company Number: 2005064157

PATIENT
  Age: 42 Year
  Sex: Female
  Weight: 72.5755 kg

DRUGS (6)
  1. BEXTRA [Suspect]
     Indication: SHOULDER PAIN
     Dosage: 20 MG (20 MG, 1 IN 1 D), ORAL
     Route: 048
     Dates: start: 20010101, end: 20050420
  2. OMEPRAZOLE [Concomitant]
  3. GAVISCON [Concomitant]
  4. SALBUTAMOL (SALBUMATOL) [Concomitant]
  5. ALL OTHER THERAPEUTIC PRODUCTS (ALL OTHER THERAPEUTIC PRODUCTS) [Concomitant]
  6. RABEPRAZOLE SODIUM [Concomitant]

REACTIONS (7)
  - BACTERIAL INFECTION [None]
  - GASTRIC DISORDER [None]
  - GASTROINTESTINAL INFECTION [None]
  - GASTROOESOPHAGEAL REFLUX DISEASE [None]
  - HYPERTENSION [None]
  - OESOPHAGEAL DISORDER [None]
  - SWELLING [None]
